FAERS Safety Report 6526097-0 (Version None)
Quarter: 2009Q4

REPORT INFORMATION
  Report Type: 
  Country: None (occurrence: None)
  Receive Date: 20091222
  Receipt Date: 20091215
  Transmission Date: 20100525
  Serious: Yes (Life-Threatening, Other)
  Sender: FDA-Public Use
  Company Number: 2009AC000516

PATIENT
  Age: 67 Year
  Sex: Female

DRUGS (2)
  1. DIGOXIN [Suspect]
     Dosage: PO
     Route: 048
  2. AMIODARONE HCL [Concomitant]

REACTIONS (3)
  - CARDIAC ARREST [None]
  - ELECTROCARDIOGRAM QT PROLONGED [None]
  - TORSADE DE POINTES [None]
